FAERS Safety Report 17231171 (Version 3)
Quarter: 2020Q1

REPORT INFORMATION
  Report Type: Spontaneous
  Country: US (occurrence: US)
  Receive Date: 20200103
  Receipt Date: 20200228
  Transmission Date: 20200409
  Serious: No
  Sender: FDA-Public Use
  Company Number: US-PFIZER INC-2019559514

PATIENT
  Age: 80 Year
  Sex: Male

DRUGS (1)
  1. EUCRISA [Suspect]
     Active Substance: CRISABOROLE
     Indication: DERMATITIS
     Dosage: UNK, AS NEEDED (APPLY BID (TWO TIMES A DAY) AS NEEDED)
     Route: 061
     Dates: start: 20181030

REACTIONS (2)
  - Therapeutic product effect incomplete [Unknown]
  - Rash [Unknown]
